FAERS Safety Report 10213973 (Version 1)
Quarter: 2014Q2

REPORT INFORMATION
  Report Type: Spontaneous
  Country: US (occurrence: US)
  Receive Date: 20140603
  Receipt Date: 20140603
  Transmission Date: 20141212
  Serious: Yes (Other)
  Sender: FDA-Public Use
  Company Number: US-BAYER-2014-077649

PATIENT
  Age: 16 Year
  Sex: Female
  Weight: 74.83 kg

DRUGS (6)
  1. ALEVE CAPLET [Suspect]
     Dosage: UNK
     Route: 048
  2. ALEVE CAPLET [Suspect]
     Dosage: 20 DF, ONCE
     Route: 048
     Dates: start: 201405, end: 201405
  3. NOVOLOG [Concomitant]
  4. INSULIN [INSULIN] [Concomitant]
  5. LEXAPRO [Concomitant]
  6. LEXAPRO [Concomitant]
     Dosage: UNK

REACTIONS (3)
  - Self injurious behaviour [None]
  - Intentional overdose [None]
  - Abdominal pain upper [Recovered/Resolved]
